FAERS Safety Report 22282165 (Version 2)
Quarter: 2024Q2

REPORT INFORMATION
  Report Type: Spontaneous
  Country: US (occurrence: US)
  Receive Date: 20230504
  Receipt Date: 20240513
  Transmission Date: 20240716
  Serious: No
  Sender: FDA-Public Use
  Company Number: US-CIPLA LTD.-2023US01069

PATIENT

DRUGS (3)
  1. ALBUTEROL [Suspect]
     Active Substance: ALBUTEROL
     Indication: Wheezing
     Dosage: 1 DOSAGE FORM (PUFF), QD (FOR THE FIRST TWO WEEKS)
     Dates: start: 20230118, end: 2023
  2. ALBUTEROL [Suspect]
     Active Substance: ALBUTEROL
     Dosage: 1 DOSAGE FORM (PUFF), QOD (AFTER TWO WEEKS)
     Dates: start: 2023
  3. FLONASE [Concomitant]
     Active Substance: FLUTICASONE PROPIONATE
     Indication: Hypersensitivity
     Dosage: 1 DOSAGE FORM, BID
     Route: 045
     Dates: start: 20230118

REACTIONS (3)
  - Hypersensitivity [Unknown]
  - Inappropriate schedule of product administration [Unknown]
  - Device delivery system issue [Unknown]

NARRATIVE: CASE EVENT DATE: 20230101
